FAERS Safety Report 9466461 (Version 1)
Quarter: 2013Q3

REPORT INFORMATION
  Report Type: Spontaneous
  Country: US (occurrence: None)
  Receive Date: 20130816
  Receipt Date: 20130816
  Transmission Date: 20140515
  Serious: No
  Sender: FDA-Public Use
  Company Number: None

PATIENT
  Sex: Female

DRUGS (1)
  1. ADCIRCA [Suspect]
     Indication: PULMONARY HYPERTENSION
     Dosage: 40 MG  DAILY  PO
     Route: 048
     Dates: start: 20130724, end: 20130801

REACTIONS (4)
  - Dyspnoea [None]
  - Chest discomfort [None]
  - Diarrhoea [None]
  - Headache [None]
